FAERS Safety Report 14798128 (Version 1)
Quarter: 2018Q2

REPORT INFORMATION
  Report Type: Spontaneous
  Country: US (occurrence: US)
  Receive Date: 20180414
  Receipt Date: 20180414
  Transmission Date: 20180711
  Serious: Yes (Disabling)
  Sender: FDA-Public Use
  Company Number: None

PATIENT
  Age: 68 Year
  Sex: Female
  Weight: 54.9 kg

DRUGS (14)
  1. TRIAMTERINE/HCTZ [Concomitant]
  2. PRESERVISION AREDS 2 [Concomitant]
     Active Substance: MINERALS\VITAMINS
  3. VITAMIN D3 [Concomitant]
     Active Substance: CHOLECALCIFEROL
  4. KCL [Concomitant]
     Active Substance: POTASSIUM CHLORIDE
  5. ALPRAZALEM [Concomitant]
  6. BONIVA [Concomitant]
     Active Substance: IBANDRONATE SODIUM
  7. DIABETIC TUSSIN DM MAXIMUM STRENGTH [Suspect]
     Active Substance: DEXTROMETHORPHAN HYDROBROMIDE\GUAIFENESIN
     Indication: COUGH
     Dosage: 2 TEASPOON(S); EVERY 4 HOURS, ORAL?
     Route: 048
     Dates: start: 20180303, end: 20180303
  8. AMLODEPIN [Concomitant]
  9. SALSALATE. [Concomitant]
     Active Substance: SALSALATE
  10. NATEGLINIDE. [Concomitant]
     Active Substance: NATEGLINIDE
  11. VALSARTINE [Concomitant]
  12. CALCIUM [Concomitant]
     Active Substance: CALCIUM
  13. ATENOLOL. [Concomitant]
     Active Substance: ATENOLOL
  14. CRESTOR [Concomitant]
     Active Substance: ROSUVASTATIN CALCIUM

REACTIONS (9)
  - Bone contusion [None]
  - Head injury [None]
  - Syncope [None]
  - Multiple injuries [None]
  - Dizziness [None]
  - Product label issue [None]
  - Discomfort [None]
  - Fall [None]
  - Limb injury [None]

NARRATIVE: CASE EVENT DATE: 20180303
